FAERS Safety Report 7700438-0 (Version None)
Quarter: 2011Q3

REPORT INFORMATION
  Report Type: 
  Country: None (occurrence: None)
  Receive Date: 20110822
  Receipt Date: 20110815
  Transmission Date: 20111222
  Serious: Yes (Hospitalization, Other)
  Sender: FDA-Public Use
  Company Number: US-TEVA-296581USA

PATIENT
  Age: 41 Year
  Sex: Female

DRUGS (1)
  1. PROPOFOL [Suspect]
     Indication: STATUS EPILEPTICUS

REACTIONS (2)
  - DRUG WITHDRAWAL SYNDROME [None]
  - CONVULSION [None]
